FAERS Safety Report 4678399-0 (Version None)
Quarter: 2005Q2

REPORT INFORMATION
  Report Type: 
  Country: None (occurrence: None)
  Receive Date: 20050527
  Receipt Date: 20050517
  Transmission Date: 20051028
  Serious: Yes (Hospitalization, Other)
  Sender: FDA-Public Use
  Company Number: 004829

PATIENT
  Age: 21 Year
  Sex: Female

DRUGS (2)
  1. SEASONALE [Suspect]
     Indication: MENSTRUATION IRREGULAR
     Dosage: 1.00 TABLET, QD; ORAL
     Route: 048
     Dates: start: 20040901, end: 20050412
  2. FLAXSEED OIL (LINSEED OIL) [Suspect]

REACTIONS (14)
  - ASTHENIA [None]
  - CEREBRAL VENOUS THROMBOSIS [None]
  - COORDINATION ABNORMAL [None]
  - DIPLOPIA [None]
  - GRAND MAL CONVULSION [None]
  - HYPOAESTHESIA [None]
  - INTERNATIONAL NORMALISED RATIO DECREASED [None]
  - INTRACRANIAL VENOUS SINUS THROMBOSIS [None]
  - MIGRAINE [None]
  - MUSCULOSKELETAL STIFFNESS [None]
  - PAPILLOEDEMA [None]
  - PHOTOPHOBIA [None]
  - SOMNOLENCE [None]
  - TREMOR [None]
